FAERS Safety Report 14481488 (Version 2)
Quarter: 2018Q1

REPORT INFORMATION
  Report Type: Report from Study
  Country: FR (occurrence: FR)
  Receive Date: 20180202
  Receipt Date: 20180221
  Transmission Date: 20180509
  Serious: Yes (Hospitalization)
  Sender: FDA-Public Use
  Company Number: FR-ASTELLAS-2018US006264

PATIENT
  Age: 3 Year
  Sex: Male

DRUGS (3)
  1. SOLUPRED                           /00016217/ [Concomitant]
     Active Substance: PREDNISOLONE
     Indication: NEOPLASM
     Dosage: 20 MG, ONCE DAILY (TUMOR SYMPTOMATIC TREATMENT)
     Route: 048
     Dates: start: 20180106, end: 20180116
  2. SOLUPRED                           /00016217/ [Concomitant]
     Active Substance: PREDNISOLONE
     Route: 048
     Dates: start: 20180116
  3. ERLOTINIB [Suspect]
     Active Substance: ERLOTINIB
     Indication: BRAIN STEM GLIOMA
     Route: 048
     Dates: start: 20171121, end: 20180116

REACTIONS (1)
  - General physical health deterioration [Recovered/Resolved]

NARRATIVE: CASE EVENT DATE: 20180116
